FAERS Safety Report 7951843-9 (Version None)
Quarter: 2011Q4

REPORT INFORMATION
  Report Type: 
  Country: None (occurrence: None)
  Receive Date: 20111201
  Receipt Date: 20111121
  Transmission Date: 20120403
  Serious: Yes (Other)
  Sender: FDA-Public Use
  Company Number: GB-SANOFI-AVENTIS-2011SA076630

PATIENT
  Age: 69 Year
  Sex: Female
  Weight: 87 kg

DRUGS (7)
  1. CARVEDILOL [Concomitant]
     Route: 065
     Dates: start: 20110923, end: 20110925
  2. CARVEDILOL [Concomitant]
     Route: 065
     Dates: start: 20111027, end: 20111029
  3. WARFARIN SODIUM [Concomitant]
     Route: 065
     Dates: start: 20111027, end: 20111028
  4. DRONEDARONE HCL [Suspect]
     Route: 065
     Dates: start: 20110923, end: 20111003
  5. WARFARIN SODIUM [Concomitant]
     Route: 065
     Dates: start: 20110923, end: 20110924
  6. WARFARIN SODIUM [Concomitant]
     Route: 065
     Dates: start: 20110826, end: 20110827
  7. VALSARTAN [Concomitant]
     Route: 065
     Dates: start: 20111027

REACTIONS (2)
  - CONTUSION [None]
  - MOUTH ULCERATION [None]
